FAERS Safety Report 6303163-6 (Version None)
Quarter: 2009Q3

REPORT INFORMATION
  Report Type: 
  Country: None (occurrence: None)
  Receive Date: 20090810
  Receipt Date: 20090304
  Transmission Date: 20100115
  Serious: No
  Sender: FDA-Public Use
  Company Number: A0771561A

PATIENT
  Age: 48 Year
  Sex: Female

DRUGS (6)
  1. PAROXETINE HCL [Suspect]
     Dosage: 12.5MG PER DAY
     Route: 048
     Dates: start: 20090204
  2. PREVACID [Concomitant]
  3. BIRTH CONTROL [Concomitant]
  4. SUDAFED 12 HOUR [Concomitant]
  5. IBUPROFEN [Concomitant]
  6. PAXIL CR [Concomitant]
     Route: 048
     Dates: start: 20070101, end: 20090101

REACTIONS (1)
  - DRUG INEFFECTIVE [None]
